FAERS Safety Report 17420875 (Version 1)
Quarter: 2020Q1

REPORT INFORMATION
  Report Type: Spontaneous
  Country: NL (occurrence: NL)
  Receive Date: 20200214
  Receipt Date: 20200214
  Transmission Date: 20200409
  Serious: Yes (Death)
  Sender: FDA-Public Use
  Company Number: NL-ACTELION-A-CH2020-201774

PATIENT
  Age: 75 Year
  Sex: Male

DRUGS (2)
  1. UPTRAVI [Suspect]
     Active Substance: SELEXIPAG
     Indication: PULMONARY ARTERIAL HYPERTENSION
     Dosage: 800 MCG, BID
     Route: 048
  2. VOLIBRIS [Concomitant]
     Active Substance: AMBRISENTAN
     Dosage: 5 MG, OD

REACTIONS (1)
  - Death [Fatal]

NARRATIVE: CASE EVENT DATE: 20200202
